FAERS Safety Report 23619651 (Version 8)
Quarter: 2025Q1

REPORT INFORMATION
  Report Type: Spontaneous
  Country: JP (occurrence: JP)
  Receive Date: 20240312
  Receipt Date: 20250311
  Transmission Date: 20250408
  Serious: Yes (Death, Other)
  Sender: GENMAB
  Company Number: JP-GENMAB-2024-00723

PATIENT
  Age: 86 Year
  Sex: Male
  Weight: 44 kg

DRUGS (3)
  1. EPKINLY [Suspect]
     Active Substance: EPCORITAMAB-BYSP
     Indication: Diffuse large B-cell lymphoma refractory
     Route: 058
     Dates: start: 2024, end: 2024
  2. EPKINLY [Suspect]
     Active Substance: EPCORITAMAB-BYSP
     Route: 058
     Dates: start: 2024, end: 2024
  3. EPKINLY [Suspect]
     Active Substance: EPCORITAMAB-BYSP
     Route: 058
     Dates: start: 2024, end: 2024

REACTIONS (4)
  - Citrobacter sepsis [Recovering/Resolving]
  - Diffuse large B-cell lymphoma refractory [Unknown]
  - Septic shock [Recovered/Resolved]
  - Marasmus [Fatal]

NARRATIVE: CASE EVENT DATE: 20240101
